FAERS Safety Report 18045290 (Version 1)
Quarter: 2020Q3

REPORT INFORMATION
  Report Type: Spontaneous
  Country: FR (occurrence: FR)
  Receive Date: 20200720
  Receipt Date: 20200720
  Transmission Date: 20201103
  Serious: Yes (Other)
  Sender: FDA-Public Use
  Company Number: FR-EXELIXIS-CABO-20031301

PATIENT
  Age: 50 Year
  Sex: Male
  Weight: 67 kg

DRUGS (4)
  1. HUMALOG [Concomitant]
     Active Substance: INSULIN LISPRO
     Dosage: UNK
  2. TAHOR [Concomitant]
     Active Substance: ATORVASTATIN CALCIUM
     Dosage: UNK
  3. CABOMETYX [Suspect]
     Active Substance: CABOZANTINIB S-MALATE
     Indication: RENAL CANCER METASTATIC
     Dosage: 20 MG, QD
     Route: 048
     Dates: start: 20200407, end: 20200615
  4. LANTUS [Concomitant]
     Active Substance: INSULIN GLARGINE
     Dosage: UNK

REACTIONS (3)
  - Disinhibition [Not Recovered/Not Resolved]
  - Euphoric mood [Not Recovered/Not Resolved]
  - Behaviour disorder [Not Recovered/Not Resolved]

NARRATIVE: CASE EVENT DATE: 20200407
